FAERS Safety Report 4422691-1 (Version None)
Quarter: 2004Q3

REPORT INFORMATION
  Report Type: 
  Country: None (occurrence: None)
  Receive Date: 20040713
  Receipt Date: 20030804
  Transmission Date: 20050211
  Serious: No
  Sender: FDA-Public Use
  Company Number: PHEH2003US06153

PATIENT
  Age: 61 Year
  Sex: Female

DRUGS (6)
  1. ELIDEL [Suspect]
     Indication: HYPERSENSITIVITY
     Dosage: BID, TOPICAL
     Route: 061
  2. TINACTIN [Concomitant]
  3. BLUE STAR OINTMENT (PETROLATUM) [Concomitant]
  4. GLUCOSAMINE SULFATE [Concomitant]
  5. CALCIUM CITRATE [Concomitant]
  6. VITAMIN D [Concomitant]

REACTIONS (1)
  - BLISTER [None]
